FAERS Safety Report 19812187 (Version 2)
Quarter: 2021Q4

REPORT INFORMATION
  Report Type: Report from Study
  Country: US (occurrence: US)
  Receive Date: 20210909
  Receipt Date: 20211005
  Transmission Date: 20220303
  Serious: Yes (Other)
  Sender: FDA-Public Use
  Company Number: US-KYOWAKIRIN-2021BKK015120

PATIENT

DRUGS (2)
  1. CRYSVITA [Suspect]
     Active Substance: BUROSUMAB-TWZA
     Indication: Hereditary hypophosphataemic rickets
     Dosage: STRENGTH 10 AND 30 MG/ML COMBINED TO ACHIEVE DOSE OF 70 MG, EVERY 4 WEEKS
     Route: 058
     Dates: start: 20200118
  2. CRYSVITA [Suspect]
     Active Substance: BUROSUMAB-TWZA
     Indication: Hereditary hypophosphataemic rickets
     Dosage: STRENGTH 10 AND 30 MG/ML COMBINED TO ACHIEVE DOSE OF 70 MG, EVERY 4 WEEKS
     Route: 058
     Dates: start: 20200118

REACTIONS (1)
  - Cholelithiasis [Unknown]
